FAERS Safety Report 9584956 (Version 1)
Quarter: 2013Q4

REPORT INFORMATION
  Report Type: Spontaneous
  Country: US (occurrence: US)
  Receive Date: 20131002
  Receipt Date: 20131002
  Transmission Date: 20140711
  Serious: No
  Sender: FDA-Public Use
  Company Number: US-AMGEN-USASP2013061821

PATIENT
  Age: 14 Year
  Sex: Female
  Weight: 77.1 kg

DRUGS (7)
  1. ENBREL [Suspect]
     Indication: PRODUCT USED FOR UNKNOWN INDICATION
     Dosage: 50 MG, QWK
     Route: 058
  2. PREDNISONE [Concomitant]
     Dosage: 1 MG, UNK
     Route: 048
  3. ZYRTEC [Concomitant]
     Dosage: 10 MG, UNK
     Route: 048
  4. NAPROXEN [Concomitant]
     Dosage: 250 MG, UNK
     Route: 048
  5. ZOFRAN                             /00955301/ [Concomitant]
     Dosage: 4 MG, UNK
     Route: 048
  6. PRILOSEC                           /00661201/ [Concomitant]
     Dosage: 40 MG, UNK
     Route: 048
  7. METHOTREXATE [Concomitant]
     Dosage: 1 G, UNK
     Route: 030

REACTIONS (3)
  - Injection site swelling [Unknown]
  - Injection site reaction [Unknown]
  - Injection site pruritus [Unknown]
